FAERS Safety Report 21659031 (Version 6)
Quarter: 2023Q2

REPORT INFORMATION
  Report Type: Report from Study
  Country: CO (occurrence: CO)
  Receive Date: 20221129
  Receipt Date: 20230505
  Transmission Date: 20230722
  Serious: Yes (Death, Hospitalization, Other)
  Sender: FDA-Public Use
  Company Number: CO-002147023-NVSC2022CO264040

PATIENT

DRUGS (2)
  1. RUXOLITINIB [Suspect]
     Active Substance: RUXOLITINIB
     Indication: Myelofibrosis
     Dosage: 25 MG, Q12H
     Route: 048
     Dates: start: 20210929
  2. RUXOLITINIB [Suspect]
     Active Substance: RUXOLITINIB
     Dosage: 50 MG, QD
     Route: 048

REACTIONS (9)
  - Headache [Unknown]
  - Central nervous system fungal infection [Unknown]
  - Death [Fatal]
  - Infection [Unknown]
  - Inappropriate schedule of product administration [Unknown]
  - Gastric infection [Unknown]
  - Immunosuppression [Unknown]
  - Decreased immune responsiveness [Unknown]
  - Urinary tract infection [Unknown]

NARRATIVE: CASE EVENT DATE: 20230414
